FAERS Safety Report 16349657 (Version 2)
Quarter: 2019Q2

REPORT INFORMATION
  Report Type: Spontaneous
  Country: MX (occurrence: MX)
  Receive Date: 20190523
  Receipt Date: 20190626
  Transmission Date: 20190711
  Serious: Yes (Hospitalization, Other)
  Sender: FDA-Public Use
  Company Number: MX-PFIZER INC-2019216668

PATIENT
  Age: 67 Year
  Sex: Female

DRUGS (3)
  1. PALBOCICLIB [Suspect]
     Active Substance: PALBOCICLIB
     Indication: BREAST CANCER METASTATIC
     Dosage: 125 MG, CYCLIC (3 WEEKS OF TREATMENT AND 1 WEEK REST)
     Route: 048
  2. FULVESTRANT. [Concomitant]
     Active Substance: FULVESTRANT
     Indication: BREAST CANCER METASTATIC
     Dosage: 250 MG, EVERY 15 DAYS AND THEN EACH MONTH
     Route: 030
  3. PALBOCICLIB [Suspect]
     Active Substance: PALBOCICLIB
     Dosage: 75 MG, 1X/DAY

REACTIONS (7)
  - Neutropenia [Unknown]
  - Petechiae [Unknown]
  - Thrombocytopenia [Unknown]
  - Fatigue [Unknown]
  - Anaemia [Recovering/Resolving]
  - Pancytopenia [Recovering/Resolving]
  - Lymphopenia [Unknown]
